FAERS Safety Report 11059393 (Version 1)
Quarter: 2015Q2

REPORT INFORMATION
  Report Type: Report from Study
  Country: CO (occurrence: CO)
  Receive Date: 20150423
  Receipt Date: 20150423
  Transmission Date: 20150821
  Serious: Yes (Death, Hospitalization)
  Sender: FDA-Public Use
  Company Number: CO-BRISTOL-MYERS SQUIBB COMPANY-BMS-2015-024701

PATIENT
  Age: 19 Year
  Sex: Male

DRUGS (1)
  1. CETUXIMAB [Suspect]
     Active Substance: CETUXIMAB
     Indication: HEAD AND NECK CANCER
     Dosage: 600 MG, UNK
     Route: 042
     Dates: start: 20150105

REACTIONS (2)
  - Infection [Fatal]
  - Intestinal obstruction [Unknown]

NARRATIVE: CASE EVENT DATE: 20150410
